FAERS Safety Report 25254711 (Version 1)
Quarter: 2025Q2

REPORT INFORMATION
  Report Type: Spontaneous
  Country: RO (occurrence: RO)
  Receive Date: 20250430
  Receipt Date: 20250430
  Transmission Date: 20250716
  Serious: Yes (Hospitalization)
  Sender: MYLAN
  Company Number: RO-MYLANLABS-2025M1036625

PATIENT
  Age: 70 Year
  Sex: Male

DRUGS (8)
  1. LOPINAVIR\RITONAVIR [Suspect]
     Active Substance: LOPINAVIR\RITONAVIR
     Indication: COVID-19
     Dosage: UNK UNK, QD, RECEIVED LOPINAVIR/RITONAVIR 4 TABLETS PER DAY
  2. ARGININE ASPARTATE [Suspect]
     Active Substance: ARGININE ASPARTATE
     Indication: Liver disorder
     Dosage: 250 MILLILITER, QD
  3. CEFTRIAXONE [Suspect]
     Active Substance: CEFTRIAXONE
     Indication: COVID-19
     Dosage: 3 GRAM, QD
  4. DEXAMETHASONE [Suspect]
     Active Substance: DEXAMETHASONE
     Indication: COVID-19
     Dosage: 8 MILLIGRAM, QD
  5. ENOXAPARIN SODIUM [Suspect]
     Active Substance: ENOXAPARIN SODIUM
     Indication: Thrombosis prophylaxis
     Dosage: 0.6 MILLILITER, QD
  6. TOCILIZUMAB [Suspect]
     Active Substance: TOCILIZUMAB
     Indication: COVID-19
     Dosage: 400 MILLIGRAM, QD, RECEIVED IN TWO DOSES
  7. DIETARY SUPPLEMENT\HERBALS\MILK THISTLE [Suspect]
     Active Substance: MILK THISTLE
     Indication: Liver disorder
     Dosage: 600 MILLIGRAM, QD
  8. DIETARY SUPPLEMENT\HERBALS\MILK THISTLE [Suspect]
     Active Substance: MILK THISTLE
     Indication: Prophylaxis

REACTIONS (3)
  - Drug ineffective for unapproved indication [Unknown]
  - Hepatic cytolysis [Recovering/Resolving]
  - Off label use [Unknown]
